FAERS Safety Report 10039605 (Version 1)
Quarter: 2014Q1

REPORT INFORMATION
  Report Type: Spontaneous
  Country: US (occurrence: US)
  Receive Date: 20140326
  Receipt Date: 20140326
  Transmission Date: 20141002
  Serious: Yes (Other)
  Sender: FDA-Public Use
  Company Number: US-PFIZER INC-2014086295

PATIENT
  Sex: Female

DRUGS (2)
  1. VENLAFAXINE HCL [Suspect]
     Dosage: 150 MG, UNK
  2. VENLAFAXINE HYDROCHLORIDE [Suspect]
     Dosage: 75 MG, UNK

REACTIONS (2)
  - Cardiac disorder [Unknown]
  - Haemorrhage [Not Recovered/Not Resolved]
